FAERS Safety Report 11764018 (Version 2)
Quarter: 2015Q4

REPORT INFORMATION
  Report Type: Spontaneous
  Country: US (occurrence: US)
  Receive Date: 20151121
  Receipt Date: 20151123
  Transmission Date: 20160304
  Serious: Yes (Other)
  Sender: FDA-Public Use
  Company Number: CHPA2015US013821

PATIENT
  Age: 85 Year
  Sex: Female

DRUGS (2)
  1. VOLTAREN [Suspect]
     Active Substance: DICLOFENAC SODIUM
     Dosage: SIZE OF A DIME, QD
     Route: 061
     Dates: start: 2008
  2. VOLTAREN [Suspect]
     Active Substance: DICLOFENAC SODIUM
     Indication: OSTEOARTHRITIS
     Dosage: SIZE OF A DIME, QD
     Route: 061
     Dates: start: 2008

REACTIONS (6)
  - Sciatica [Recovering/Resolving]
  - Peripheral venous disease [Recovered/Resolved]
  - Pain [Recovering/Resolving]
  - Inappropriate schedule of drug administration [Unknown]
  - Wrong technique in product usage process [Unknown]
  - Drug dispensed to wrong patient [Unknown]

NARRATIVE: CASE EVENT DATE: 2008
